FAERS Safety Report 6040979-8 (Version None)
Quarter: 2009Q1

REPORT INFORMATION
  Report Type: 
  Country: None (occurrence: None)
  Receive Date: 20090116
  Receipt Date: 20080717
  Transmission Date: 20090719
  Serious: No
  Sender: FDA-Public Use
  Company Number: US-BRISTOL-MYERS SQUIBB COMPANY-14265920

PATIENT
  Age: 28 Year
  Sex: Male
  Weight: 86 kg

DRUGS (8)
  1. ABILIFY [Suspect]
     Indication: BIPOLAR DISORDER
     Dosage: STARTED 6 TO 8 MONTHS AGO.
  2. ABILIFY [Suspect]
     Indication: DEPRESSION
     Dosage: STARTED 6 TO 8 MONTHS AGO.
  3. BUSPIRONE HCL [Concomitant]
  4. XANAX [Concomitant]
  5. HYDROCODONE BITARTRATE [Concomitant]
  6. LEXAPRO [Concomitant]
  7. LANTUS [Concomitant]
  8. HUMALOG [Concomitant]

REACTIONS (2)
  - AGGRESSION [None]
  - ANGER [None]
